FAERS Safety Report 6115548-1 (Version None)
Quarter: 2009Q1

REPORT INFORMATION
  Report Type: 
  Country: None (occurrence: None)
  Receive Date: 20090313
  Receipt Date: 20090303
  Transmission Date: 20090719
  Serious: Yes (Death)
  Sender: FDA-Public Use
  Company Number: NZ-ELI_LILLY_AND_COMPANY-NZ200903000511

PATIENT
  Age: 43 Year
  Sex: Male

DRUGS (5)
  1. ZYPREXA [Suspect]
  2. LITHIUM CARBONATE [Concomitant]
  3. VALIUM [Concomitant]
  4. ETHANOL [Concomitant]
  5. NICOTIANA TABACUM [Concomitant]

REACTIONS (1)
  - COMPLETED SUICIDE [None]
